FAERS Safety Report 4880897-1 (Version None)
Quarter: 2005Q4

REPORT INFORMATION
  Report Type: 
  Country: None (occurrence: None)
  Receive Date: 20051223
  Receipt Date: 20051104
  Transmission Date: 20060501
  Serious: No
  Sender: FDA-Public Use
  Company Number: 05P-163-0316535-00

PATIENT
  Age: 73 Year
  Sex: Female

DRUGS (10)
  1. HUMIRA [Suspect]
     Indication: RHEUMATOID ARTHRITIS
     Dosage: 40 MG, 1 IN 3 WK, SUBCUTANEOUS
     Route: 058
     Dates: start: 20040101
  2. METHOTREXATE [Concomitant]
  3. PREDNISONE [Concomitant]
  4. FOLIC ACID [Concomitant]
  5. PAROXETINE HYDROCHLORIDE [Concomitant]
  6. OXYCOCET [Concomitant]
  7. GABAPENTIN [Concomitant]
  8. AMLODIPINE BESYLATE [Concomitant]
  9. BUSPIRONE HCL [Concomitant]
  10. TRAZODONE HCL [Concomitant]

REACTIONS (2)
  - MALAISE [None]
  - RED BLOOD CELL SEDIMENTATION RATE INCREASED [None]
